FAERS Safety Report 13164576 (Version 1)
Quarter: 2017Q1

REPORT INFORMATION
  Report Type: Report from Study
  Country: US (occurrence: US)
  Receive Date: 20170130
  Receipt Date: 20170130
  Transmission Date: 20170428
  Serious: No
  Sender: FDA-Public Use
  Company Number: US-AMGEN-USASL2017013158

PATIENT
  Age: 68 Year
  Sex: Female

DRUGS (1)
  1. ENBREL [Suspect]
     Active Substance: ETANERCEPT
     Indication: RHEUMATOID ARTHRITIS
     Dosage: 50 MG, QWK
     Route: 065

REACTIONS (7)
  - Haemorrhoids [Unknown]
  - Ulcer [Unknown]
  - Hypoacusis [Unknown]
  - Diverticulum [Unknown]
  - Nasopharyngitis [Unknown]
  - Hernia [Unknown]
  - Occult blood positive [Unknown]
